FAERS Safety Report 24788873 (Version 4)
Quarter: 2025Q1

REPORT INFORMATION
  Report Type: Spontaneous
  Country: US (occurrence: US)
  Receive Date: 20241230
  Receipt Date: 20250219
  Transmission Date: 20250408
  Serious: Yes (Other)
  Sender: PFIZER
  Company Number: US-PFIZER INC-202400328921

PATIENT
  Age: 50 Year
  Sex: Female
  Weight: 56.7 kg

DRUGS (3)
  1. ESTRING [Suspect]
     Active Substance: ESTRADIOL
     Indication: Vulvovaginal dryness
     Route: 067
     Dates: start: 20240106
  2. ESTRING [Suspect]
     Active Substance: ESTRADIOL
     Route: 067
     Dates: start: 20241113, end: 20241127
  3. ESTRING [Suspect]
     Active Substance: ESTRADIOL
     Route: 067
     Dates: start: 20241203

REACTIONS (4)
  - Bacterial vaginosis [Recovering/Resolving]
  - Fungal infection [Unknown]
  - Product communication issue [Unknown]
  - Device use issue [Unknown]

NARRATIVE: CASE EVENT DATE: 20241127
